FAERS Safety Report 7396022-1 (Version None)
Quarter: 2011Q2

REPORT INFORMATION
  Report Type: 
  Country: None (occurrence: None)
  Receive Date: 20110406
  Receipt Date: 20110328
  Transmission Date: 20111010
  Serious: No
  Sender: FDA-Public Use
  Company Number: US-ELI_LILLY_AND_COMPANY-US201010005614

PATIENT
  Sex: Male

DRUGS (2)
  1. HUMALOG MIX 75/25 [Suspect]
  2. HUMALOG [Suspect]
     Indication: DIABETES MELLITUS
     Dosage: UNK
     Route: 058

REACTIONS (3)
  - DRUG DISPENSING ERROR [None]
  - BLOOD GLUCOSE ABNORMAL [None]
  - BLOOD GLUCOSE INCREASED [None]
